FAERS Safety Report 23449283 (Version 1)
Quarter: 2024Q1

REPORT INFORMATION
  Report Type: Spontaneous
  Country: US (occurrence: US)
  Receive Date: 20240129
  Receipt Date: 20240129
  Transmission Date: 20240410
  Serious: No
  Sender: FDA-Public Use
  Company Number: US-ELI_LILLY_AND_COMPANY-US202401013374

PATIENT
  Sex: Female

DRUGS (1)
  1. JAYPIRCA [Suspect]
     Active Substance: PIRTOBRUTINIB
     Indication: Mantle cell lymphoma
     Dosage: UNK UNK, UNKNOWN
     Route: 065
     Dates: start: 202311

REACTIONS (2)
  - Lymphocyte count decreased [Recovered/Resolved]
  - Lymphocyte count increased [Recovered/Resolved]
